FAERS Safety Report 5081028-8 (Version None)
Quarter: 2006Q3

REPORT INFORMATION
  Report Type: 
  Country: None (occurrence: None)
  Receive Date: 20060810
  Receipt Date: 20060731
  Transmission Date: 20061208
  Serious: Yes (Other)
  Sender: FDA-Public Use
  Company Number: HQWYE606101AUG06

PATIENT
  Age: 53 Year
  Sex: Female
  Weight: 61.74 kg

DRUGS (2)
  1. PREMPRO [Suspect]
     Indication: HORMONE REPLACEMENT THERAPY
     Dosage: 0.625MG-2.5MG/QD, ORAL
     Route: 048
     Dates: start: 20050701
  2. LIPITOR [Concomitant]

REACTIONS (2)
  - HOT FLUSH [None]
  - VAGINAL HAEMORRHAGE [None]
